FAERS Safety Report 11930410 (Version 5)
Quarter: 2016Q2

REPORT INFORMATION
  Report Type: Spontaneous
  Country: US (occurrence: US)
  Receive Date: 20160120
  Receipt Date: 20160415
  Transmission Date: 20160815
  Serious: Yes (Hospitalization)
  Sender: FDA-Public Use
  Company Number: US-PFIZER INC-2016015723

PATIENT
  Age: 60 Year
  Sex: Female
  Weight: 95 kg

DRUGS (22)
  1. RAPAMUNE [Suspect]
     Active Substance: SIROLIMUS
     Dosage: 3 MG, DAILY
     Route: 048
  2. TESSALON [Suspect]
     Active Substance: BENZONATATE
     Indication: COUGH
     Dosage: 100 MG, AS NEEDED (3 TIMES A DAY AS NEEDED)
     Route: 048
  3. ZETIA [Concomitant]
     Active Substance: EZETIMIBE
     Dosage: 10 MG, DAILY
     Route: 048
  4. VOLTAREN [Concomitant]
     Active Substance: DICLOFENAC SODIUM
     Dosage: UNK, AS NEEDED (2 TIMES A DAY AS NEEDED)
     Route: 061
     Dates: end: 201602
  5. IMODIUM [Concomitant]
     Active Substance: LOPERAMIDE HYDROCHLORIDE
     Dosage: 1 MG, 2X/DAY
     Route: 048
  6. TRIAMCINOLONE [Concomitant]
     Active Substance: TRIAMCINOLONE
     Indication: ULCER
     Dosage: UNK, 2X/DAY (PLACE ONTO TEETH)
  7. RAPAMUNE [Suspect]
     Active Substance: SIROLIMUS
     Dosage: UNK, 1X/DAY (4 1/2)
     Dates: start: 200802
  8. TRICOR [Concomitant]
     Active Substance: FENOFIBRATE
     Dosage: 145 MG, DAILY
     Route: 048
  9. VICODIN [Concomitant]
     Active Substance: ACETAMINOPHEN\HYDROCODONE BITARTRATE
     Indication: PAIN
     Dosage: 1 DF, AS NEEDED (HYDROCODONE BITARTRATE: 5MG, PARACETAMOL: 300MG/EVERY 6 HOURS AS NEEDED)
     Route: 048
  10. ZESTRIL [Concomitant]
     Active Substance: LISINOPRIL
     Dosage: 40 MG, DAILY
     Route: 048
  11. PROTONIX [Suspect]
     Active Substance: PANTOPRAZOLE SODIUM
     Dosage: 40 MG, DAILY
     Route: 048
  12. CELLCEPT [Concomitant]
     Active Substance: MYCOPHENOLATE MOFETIL\MYCOPHENOLATE MOFETIL HYDROCHLORIDE
     Dosage: 750 MG, 2X/DAY
     Route: 048
  13. NOVOLOG [Concomitant]
     Active Substance: INSULIN ASPART
     Dosage: UNK (100UNIT/ML)
     Route: 058
  14. RAPAMUNE [Suspect]
     Active Substance: SIROLIMUS
     Indication: HEART TRANSPLANT
     Dosage: 5 MG, ONCE A DAY
     Route: 048
  15. NORVASC [Suspect]
     Active Substance: AMLODIPINE BESYLATE
     Dosage: 5 MG, DAILY
     Route: 048
  16. LIPITOR [Suspect]
     Active Substance: ATORVASTATIN CALCIUM
     Dosage: 40 MG, DAILY
     Route: 048
  17. GUAIFENESIN AC [Concomitant]
     Active Substance: CODEINE PHOSPHATE\GUAIFENESIN
     Indication: COUGH
     Dosage: 5 ML, AS NEEDED (EVERY 4 HOURS AS NEEDED )
     Route: 048
  18. BACTRIM [Concomitant]
     Active Substance: SULFAMETHOXAZOLE\TRIMETHOPRIM
     Dosage: 1 DF, ALTERNATE DAY (SULFAMETHOXAZOLE: 400MG, TRIMETHOPRIM: 800MG/1 TABLETS MON-WED-FRI)
  19. ZOLOFT [Suspect]
     Active Substance: SERTRALINE HYDROCHLORIDE
     Dosage: 100 MG, DAILY
     Route: 048
  20. ROBITUSSIN A-C [Concomitant]
     Dosage: UNK, AS NEEDED (EVERY 4 HOURS AS NEEDED)
     Route: 048
  21. PROVENTIL [Concomitant]
     Active Substance: ALBUTEROL
     Indication: WHEEZING
     Dosage: UNK, AS NEEDED (2 PUFFS EVERY 6 HOURS AS NEEDED)
     Route: 055
  22. PRINIVIL [Concomitant]
     Active Substance: LISINOPRIL
     Dosage: 40 MG, DAILY
     Route: 048

REACTIONS (4)
  - Product use issue [Unknown]
  - Haemoptysis [Recovered/Resolved]
  - Pneumonia [Not Recovered/Not Resolved]
  - Cardiac failure congestive [Recovered/Resolved]

NARRATIVE: CASE EVENT DATE: 200902
